FAERS Safety Report 7328277-3 (Version None)
Quarter: 2011Q1

REPORT INFORMATION
  Report Type: 
  Country: None (occurrence: None)
  Receive Date: 20110303
  Receipt Date: 20110223
  Transmission Date: 20110831
  Serious: Yes (Other)
  Sender: FDA-Public Use
  Company Number: AU-SANOFI-AVENTIS-2011SA011753

PATIENT

DRUGS (1)
  1. POLYSTYRENE SULFONATE SODIUM [Suspect]
     Route: 065
     Dates: start: 20110221

REACTIONS (2)
  - LIP SWELLING [None]
  - DYSPNOEA [None]
